FAERS Safety Report 9108538 (Version 1)
Quarter: 2013Q1

REPORT INFORMATION
  Report Type: Spontaneous
  Country: US (occurrence: US)
  Receive Date: 20130222
  Receipt Date: 20130222
  Transmission Date: 20140127
  Serious: Yes (Hospitalization)
  Sender: FDA-Public Use
  Company Number: US-BAYER-2013-021090

PATIENT
  Age: 37 Year
  Sex: Female
  Weight: 81.63 kg

DRUGS (2)
  1. YAZ [Suspect]
     Indication: PREMENSTRUAL DYSPHORIC DISORDER
     Dosage: UNK
     Dates: start: 200706, end: 20080213
  2. VALTREX [Concomitant]
     Indication: VIRAL INFECTION
     Dosage: 500 MG, UNK
     Route: 048
     Dates: start: 1990

REACTIONS (5)
  - Pulmonary embolism [None]
  - Thrombosis [None]
  - Pain in extremity [None]
  - Dyspnoea [None]
  - Deep vein thrombosis [Recovered/Resolved]
